FAERS Safety Report 11698116 (Version 1)
Quarter: 2015Q4

REPORT INFORMATION
  Report Type: Spontaneous
  Country: JP (occurrence: JP)
  Receive Date: 20151104
  Receipt Date: 20151104
  Transmission Date: 20160304
  Serious: Yes (Death)
  Sender: FDA-Public Use
  Company Number: JP-SA-2015SA132756

PATIENT
  Age: 79 Year
  Sex: Male
  Weight: 52 kg

DRUGS (3)
  1. ONETAXOTERE [Suspect]
     Active Substance: DOCETAXEL
     Indication: PROSTATE CANCER
     Route: 042
     Dates: start: 20150804
  2. DECADRON [Concomitant]
     Active Substance: DEXAMETHASONE
     Indication: PROPHYLAXIS
     Route: 042
     Dates: start: 20130804
  3. G-LASTA [Concomitant]
     Active Substance: PEGFILGRASTIM
     Dates: start: 20150806, end: 20150806

REACTIONS (10)
  - Pyuria [Fatal]
  - Liver disorder [Fatal]
  - Renal disorder [Fatal]
  - Lung infection [Fatal]
  - Pyrexia [Fatal]
  - Febrile neutropenia [Fatal]
  - Pneumonia [Fatal]
  - Ileus [Fatal]
  - Shock [Fatal]
  - Urinary tract infection [Fatal]

NARRATIVE: CASE EVENT DATE: 20150807
